FAERS Safety Report 4932812-X (Version None)
Quarter: 2006Q1

REPORT INFORMATION
  Report Type: 
  Country: None (occurrence: None)
  Receive Date: 20060302
  Receipt Date: 20060302
  Transmission Date: 20060701
  Serious: Yes (Death)
  Sender: FDA-Public Use
  Company Number: None

PATIENT
  Age: 70 Year
  Sex: Male
  Weight: 96.1626 kg

DRUGS (14)
  1. ONTAK [Suspect]
     Indication: T-CELL LYMPHOMA
     Dosage: 855 MG Q D X 5D Q 3 WEEKS IV
     Route: 042
     Dates: start: 20060207, end: 20060210
  2. ONTAK [Suspect]
     Indication: T-CELL LYMPHOMA
     Dosage: 855 MG Q D X 5D Q 3 WEEKS IV
     Route: 042
     Dates: start: 20060213
  3. ONTAK [Suspect]
     Indication: T-CELL LYMPHOMA
     Dosage: 855 MG Q D X 5D Q 3 WEEKS IV
     Route: 042
     Dates: start: 20060227
  4. TYLENOL (CAPLET) [Concomitant]
  5. DECADRON SRC [Concomitant]
  6. ZOFRAN [Concomitant]
  7. CENTRUM SILVER [Concomitant]
  8. CIPRO [Concomitant]
  9. SINGULAIR [Concomitant]
  10. ALBUTEROL [Concomitant]
  11. LEVOTHYROXINE SODIUM [Concomitant]
  12. SAW PALMETTO [Concomitant]
  13. FOLIC ACID [Concomitant]
  14. GLUCOSAMINE SULFATE [Concomitant]

REACTIONS (10)
  - BLOOD PRESSURE IMMEASURABLE [None]
  - BRADYCARDIA [None]
  - ERYTHEMA [None]
  - EYE ROLLING [None]
  - FEELING ABNORMAL [None]
  - INFUSION RELATED REACTION [None]
  - LOSS OF CONSCIOUSNESS [None]
  - MIOSIS [None]
  - MOANING [None]
  - VOMITING [None]
